FAERS Safety Report 10407835 (Version 1)
Quarter: 2014Q3

REPORT INFORMATION
  Report Type: Spontaneous
  Country: BR (occurrence: BR)
  Receive Date: 20140825
  Receipt Date: 20140825
  Transmission Date: 20150326
  Serious: Yes (Other)
  Sender: FDA-Public Use
  Company Number: BR-ABBVIE-14P-020-1275448-00

PATIENT
  Age: 80 Year
  Sex: Male

DRUGS (2)
  1. ZEMPLAR [Suspect]
     Active Substance: PARICALCITOL
     Indication: PRODUCT USED FOR UNKNOWN INDICATION
     Dosage: 5 MCG/DIALYSIS
  2. CALCIJEX [Suspect]
     Active Substance: CALCITRIOL
     Indication: PRODUCT USED FOR UNKNOWN INDICATION

REACTIONS (6)
  - Headache [Unknown]
  - Skin lesion [Unknown]
  - Diarrhoea [Unknown]
  - Nausea [Unknown]
  - Eye disorder [Unknown]
  - Adverse reaction [Unknown]

NARRATIVE: CASE EVENT DATE: 201402
